FAERS Safety Report 4967450-6 (Version None)
Quarter: 2006Q2

REPORT INFORMATION
  Report Type: 
  Country: None (occurrence: None)
  Receive Date: 20060407
  Receipt Date: 20060407
  Transmission Date: 20061013
  Serious: Yes (Death)
  Sender: FDA-Public Use
  Company Number: None

PATIENT
  Age: 79 Year
  Sex: Male

DRUGS (17)
  1. OXYCODONE AND ACETAMINOPHEN [Suspect]
     Dosage: 5/325 MG   TID   (DURATION: MONTHS)
  2. TERAZOSIN [Concomitant]
  3. SERTRALINE [Concomitant]
  4. SENNA [Concomitant]
  5. OMEPRAZOLE [Concomitant]
  6. CITRATE OF MAGNESIUM [Concomitant]
  7. METHYLCELLULOSE [Concomitant]
  8. LIDOCAIN HCL [Concomitant]
  9. HYDROCHLOROTHIAZIDE [Concomitant]
  10. GUAIFENESIN [Concomitant]
  11. FINASTERIDE [Concomitant]
  12. FERROUS SULFATE TAB [Concomitant]
  13. FELODIPINE [Concomitant]
  14. ENALAPRIL MALEATE [Concomitant]
  15. AMANTADINE HCL [Concomitant]
  16. ASPIRIN [Concomitant]
  17. ACETAMINOPHEN [Concomitant]

REACTIONS (10)
  - ABDOMINAL STRANGULATED HERNIA [None]
  - APNOEA [None]
  - CHEST PAIN [None]
  - CONSTIPATION [None]
  - DIARRHOEA [None]
  - ELECTROMECHANICAL DISSOCIATION [None]
  - GASTROINTESTINAL DISORDER [None]
  - ILEUS PARALYTIC [None]
  - INTESTINAL ISCHAEMIA [None]
  - LOSS OF CONSCIOUSNESS [None]
